FAERS Safety Report 13195715 (Version 1)
Quarter: 2017Q1

REPORT INFORMATION
  Report Type: Spontaneous
  Country: US (occurrence: US)
  Receive Date: 20170208
  Receipt Date: 20170208
  Transmission Date: 20170428
  Serious: Yes (Other)
  Sender: FDA-Public Use
  Company Number: US-ASTRAZENECA-2017SE13974

PATIENT
  Age: 43 Year
  Sex: Male
  Weight: 101.5 kg

DRUGS (4)
  1. PAROXETINE EXTENDED RELEASE [Concomitant]
     Indication: BIPOLAR DISORDER
     Route: 048
  2. QUETIAPINE FUMARATE. [Suspect]
     Active Substance: QUETIAPINE FUMARATE
     Indication: BIPOLAR DISORDER
     Route: 048
     Dates: start: 2004, end: 2006
  3. QUETIAPINE FUMARATE. [Suspect]
     Active Substance: QUETIAPINE FUMARATE
     Indication: BIPOLAR DISORDER
     Route: 048
     Dates: start: 20170111
  4. TRIHEXYPHENIDYL [Concomitant]
     Active Substance: TRIHEXYPHENIDYL
     Indication: TREMOR
     Route: 048
     Dates: start: 20170111

REACTIONS (3)
  - Seizure [Unknown]
  - Vision blurred [Unknown]
  - Hypertension [Unknown]
